FAERS Safety Report 6068018-3 (Version None)
Quarter: 2009Q1

REPORT INFORMATION
  Report Type: 
  Country: None (occurrence: None)
  Receive Date: 20090206
  Receipt Date: 20090203
  Transmission Date: 20090719
  Serious: Yes (Hospitalization)
  Sender: FDA-Public Use
  Company Number: US-BRISTOL-MYERS SQUIBB COMPANY-14492680

PATIENT
  Age: 9 Year
  Sex: Female

DRUGS (3)
  1. ABILIFY [Suspect]
     Indication: PSYCHOTIC DISORDER
     Dosage: ACTUAL DOSE TO BE TAKEN 2.5 MG
  2. ABILIFY [Suspect]
     Indication: HALLUCINATION, VISUAL
     Dosage: ACTUAL DOSE TO BE TAKEN 2.5 MG
  3. ZOLOFT [Concomitant]

REACTIONS (2)
  - MEDICATION ERROR [None]
  - NO ADVERSE EVENT [None]
